FAERS Safety Report 5381459-2 (Version None)
Quarter: 2007Q3

REPORT INFORMATION
  Report Type: 
  Country: None (occurrence: None)
  Receive Date: 20070709
  Receipt Date: 20070628
  Transmission Date: 20080115
  Serious: Yes (Other)
  Sender: FDA-Public Use
  Company Number: US-JNJFOC-20070700187

PATIENT
  Sex: Female

DRUGS (4)
  1. ULTRAM [Suspect]
     Indication: PAIN
     Dosage: AS NEEDED
     Route: 048
  2. METOPROLOL SUCCINATE [Concomitant]
     Indication: DRUG USE FOR UNKNOWN INDICATION
     Dosage: SINCE YEARS
     Route: 048
  3. MAXZIDE [Concomitant]
     Indication: DRUG USE FOR UNKNOWN INDICATION
     Dosage: SINCE MONTHS
     Route: 048
  4. VIGAMOX [Concomitant]
     Indication: DRUG USE FOR UNKNOWN INDICATION
     Route: 047

REACTIONS (2)
  - NIGHTMARE [None]
  - TRISMUS [None]
